FAERS Safety Report 12270546 (Version 1)
Quarter: 2016Q2

REPORT INFORMATION
  Report Type: Spontaneous
  Country: US (occurrence: None)
  Receive Date: 20160414
  Receipt Date: 20160414
  Transmission Date: 20160815
  Serious: Yes (Hospitalization, Disabling)
  Sender: FDA-Public Use
  Company Number: None

PATIENT
  Age: 44 Year
  Sex: Female
  Weight: 93.4 kg

DRUGS (2)
  1. LAMOTRIGINE, 100 MG [Suspect]
     Active Substance: LAMOTRIGINE
     Indication: DEPRESSION
     Route: 048
  2. LAMOTRIGINE, 100 MG [Suspect]
     Active Substance: LAMOTRIGINE
     Indication: ANXIETY
     Route: 048

REACTIONS (6)
  - Pyrexia [None]
  - Toxic epidermal necrolysis [None]
  - Rash pruritic [None]
  - Stomatitis [None]
  - Conjunctivitis [None]
  - Stevens-Johnson syndrome [None]

NARRATIVE: CASE EVENT DATE: 20140610
